FAERS Safety Report 5031365-8 (Version None)
Quarter: 2006Q2

REPORT INFORMATION
  Report Type: 
  Country: None (occurrence: None)
  Receive Date: 20060616
  Receipt Date: 20060531
  Transmission Date: 20061013
  Serious: Yes (Hospitalization)
  Sender: FDA-Public Use
  Company Number: APP200600154

PATIENT
  Age: 32 Year
  Sex: Female

DRUGS (2)
  1. CHORIONIC GONADOTROPIN FOR INJECTION [Suspect]
     Indication: INFERTILITY
     Dosage: 5000 IU
  2. MENOTROPHIN                     (MENOTROPHIN) [Suspect]
     Indication: INFERTILITY

REACTIONS (7)
  - BREECH PRESENTATION [None]
  - CAESAREAN SECTION [None]
  - DRUG EXPOSURE DURING PREGNANCY [None]
  - OVARIAN CYST [None]
  - OVARIAN ENLARGEMENT [None]
  - OVARIAN TORSION [None]
  - PREGNANCY [None]
